FAERS Safety Report 17602396 (Version 1)
Quarter: 2020Q1

REPORT INFORMATION
  Report Type: Report from Study
  Country: GR (occurrence: GR)
  Receive Date: 20200331
  Receipt Date: 20200331
  Transmission Date: 20200409
  Serious: Yes (Hospitalization, Other)
  Sender: FDA-Public Use
  Company Number: GR-TAKEDA-2020TUS016067

PATIENT
  Age: 43 Year
  Sex: Female

DRUGS (3)
  1. PONATINIB [Suspect]
     Active Substance: PONATINIB
     Indication: ACUTE MEGAKARYOCYTIC LEUKAEMIA
     Dosage: UNK
     Route: 065
     Dates: start: 2019
  2. PONATINIB [Suspect]
     Active Substance: PONATINIB
     Dosage: UNK
     Route: 065
  3. ISAVUCONAZOLE [Concomitant]
     Active Substance: ISAVUCONAZOLE
     Indication: PRODUCT USED FOR UNKNOWN INDICATION
     Dosage: UNK
     Route: 065

REACTIONS (11)
  - Neutropenia [Unknown]
  - Dyspnoea [Unknown]
  - Thrombocytopenia [Unknown]
  - Bronchopulmonary aspergillosis [Recovering/Resolving]
  - Anaemia [Unknown]
  - Pyrexia [Unknown]
  - Rales [Unknown]
  - Off label use [Unknown]
  - Oxygen saturation decreased [Unknown]
  - Cough [Unknown]
  - Lung disorder [Recovering/Resolving]
